FAERS Safety Report 18393384 (Version 1)
Quarter: 2020Q4

REPORT INFORMATION
  Report Type: Spontaneous
  Country: HR (occurrence: HR)
  Receive Date: 20201016
  Receipt Date: 20201016
  Transmission Date: 20210114
  Serious: Yes (Other)
  Sender: FDA-Public Use
  Company Number: HR-JNJFOC-20201021127

PATIENT
  Sex: Male
  Weight: 90 kg

DRUGS (2)
  1. RIVAROXABAN [Suspect]
     Active Substance: RIVAROXABAN
     Indication: PRODUCT USED FOR UNKNOWN INDICATION
     Dosage: 2.5 MG, EVERY 12 H
     Route: 048
  2. ASPIRIN PROTECT 100 MG [Suspect]
     Active Substance: ASPIRIN
     Indication: HYPERTENSION
     Dosage: UNK, QD
     Route: 065

REACTIONS (8)
  - Peripheral artery stenosis [Unknown]
  - Weight increased [Unknown]
  - Gait disturbance [Unknown]
  - Pulse absent [Unknown]
  - Off label use [Unknown]
  - Pain in extremity [Unknown]
  - Arthropathy [Unknown]
  - Product use in unapproved indication [Unknown]
